FAERS Safety Report 20206108 (Version 1)
Quarter: 2021Q4

REPORT INFORMATION
  Report Type: Spontaneous
  Country: US (occurrence: None)
  Receive Date: 20211217
  Receipt Date: 20211217
  Transmission Date: 20220303
  Serious: No
  Sender: FDA-Public Use
  Company Number: None

PATIENT
  Age: 74 Year
  Sex: Female
  Weight: 60.75 kg

DRUGS (14)
  1. CAPECITABINE [Suspect]
     Active Substance: CAPECITABINE
     Indication: Bone cancer
     Dosage: OTHER FREQUENCY : AM,1.5PMX14/21DAYS;?
     Route: 048
     Dates: start: 20211014, end: 20211216
  2. Vitamin D [Concomitant]
  3. CALCIUM GLUCONATE [Concomitant]
     Active Substance: CALCIUM GLUCONATE
  4. GLUCOSAMINE SULFATE [Concomitant]
  5. Vitamin B12 [Concomitant]
  6. DOCUSATE [Concomitant]
  7. APIXABAN [Concomitant]
     Active Substance: APIXABAN
  8. ONDANSETRON [Concomitant]
  9. PROCHLORPERAZINE [Concomitant]
  10. TRAMADOL [Concomitant]
     Active Substance: TRAMADOL
  11. SODIUM POLYSTYRENE SULFONATE [Concomitant]
  12. CITALOPRAM [Concomitant]
     Active Substance: CITALOPRAM HYDROBROMIDE
  13. ALPELISIB [Concomitant]
  14. Lomotil [Concomitant]

REACTIONS (1)
  - Disease progression [None]

NARRATIVE: CASE EVENT DATE: 20211217
